FAERS Safety Report 7350972-0 (Version None)
Quarter: 2011Q1

REPORT INFORMATION
  Report Type: 
  Country: None (occurrence: None)
  Receive Date: 20110314
  Receipt Date: 20110309
  Transmission Date: 20110831
  Serious: Yes (Death)
  Sender: FDA-Public Use
  Company Number: FR-JNJFOC-20110304229

PATIENT
  Age: 37 Year
  Sex: Male

DRUGS (1)
  1. HALDOL [Suspect]
     Indication: SCHIZOPHRENIA
     Route: 065

REACTIONS (1)
  - PULMONARY OEDEMA [None]
